FAERS Safety Report 9517615 (Version 2)
Quarter: 2013Q4

REPORT INFORMATION
  Report Type: Report from Study
  Country: CA (occurrence: CA)
  Receive Date: 20130912
  Receipt Date: 20131114
  Transmission Date: 20140711
  Serious: Yes (Death, Hospitalization, Other)
  Sender: FDA-Public Use
  Company Number: CA-ROCHE-1273435

PATIENT
  Sex: Female

DRUGS (1)
  1. PULMOZYME [Suspect]
     Indication: CYSTIC FIBROSIS
     Route: 055
     Dates: start: 201211, end: 2013

REACTIONS (4)
  - Respiratory failure [Fatal]
  - Condition aggravated [Fatal]
  - Lung infection [Unknown]
  - Total lung capacity decreased [Not Recovered/Not Resolved]
